FAERS Safety Report 5526344-8 (Version None)
Quarter: 2007Q4

REPORT INFORMATION
  Report Type: 
  Country: None (occurrence: None)
  Receive Date: 20071121
  Receipt Date: 20071121
  Transmission Date: 20080405
  Serious: Yes (Hospitalization)
  Sender: FDA-Public Use
  Company Number: None

PATIENT
  Sex: Male
  Weight: 90.7194 kg

DRUGS (2)
  1. ZANTAC 150 [Suspect]
     Indication: NAUSEA
     Dosage: ONE TABLET
     Dates: start: 20071110, end: 20071110
  2. ZANTAC 150 [Suspect]
     Indication: NAUSEA
     Dosage: ONE TABLET
     Dates: start: 20071110, end: 20071110

REACTIONS (2)
  - MEDICATION TAMPERING [None]
  - PHARMACEUTICAL PRODUCT COMPLAINT [None]
